FAERS Safety Report 19509938 (Version 1)
Quarter: 2021Q3

REPORT INFORMATION
  Report Type: Other
  Country: FR (occurrence: FR)
  Receive Date: 20210709
  Receipt Date: 20210709
  Transmission Date: 20211014
  Serious: Yes (Hospitalization, Other)
  Sender: FDA-Public Use
  Company Number: FR-APOTEX-2021AP015822

PATIENT
  Age: 38 Year
  Sex: Male

DRUGS (5)
  1. FLUOXETINE [Suspect]
     Active Substance: FLUOXETINE HYDROCHLORIDE
     Indication: INTENTIONAL OVERDOSE
     Dosage: 260 MILLIGRAM
     Route: 048
     Dates: start: 20210506, end: 20210506
  2. LORATADINE. [Suspect]
     Active Substance: LORATADINE
     Indication: INTENTIONAL OVERDOSE
     Dosage: 100 MILLIGRAM
     Route: 048
     Dates: start: 20210506, end: 20210506
  3. TERCIAN [CYAMEMAZINE] [Suspect]
     Active Substance: CYAMEMAZINE
     Indication: INTENTIONAL OVERDOSE
     Dosage: 375 MILLIGRAM
     Route: 048
     Dates: start: 20210506, end: 20210506
  4. ARIPIPRAZOLE. [Suspect]
     Active Substance: ARIPIPRAZOLE
     Indication: INTENTIONAL OVERDOSE
     Dosage: 45 MILLIGRAM
     Route: 048
     Dates: start: 20210506, end: 20210506
  5. PAROXETINE. [Suspect]
     Active Substance: PAROXETINE
     Indication: INTENTIONAL OVERDOSE
     Dosage: 140 MG
     Route: 048
     Dates: start: 20210506, end: 20210506

REACTIONS (2)
  - Sedation [Recovered/Resolved]
  - Poisoning deliberate [Recovered/Resolved]

NARRATIVE: CASE EVENT DATE: 20210506
